FAERS Safety Report 4702212-6 (Version None)
Quarter: 2005Q2

REPORT INFORMATION
  Report Type: 
  Country: None (occurrence: None)
  Receive Date: 20050629
  Receipt Date: 20050617
  Transmission Date: 20051028
  Serious: Yes (Other)
  Sender: FDA-Public Use
  Company Number: PHBS2005BE08880

PATIENT
  Age: 76 Year
  Sex: Female

DRUGS (6)
  1. AREDIA [Suspect]
     Indication: BREAST CANCER
     Dosage: 90 MG, QMO
     Route: 042
     Dates: start: 20020402, end: 20020913
  2. ZOMETA [Suspect]
     Indication: BREAST CANCER
     Dosage: 4 MG, QMO
     Route: 042
     Dates: start: 20021011, end: 20050524
  3. PAMIDRONATE DISODIUM [Suspect]
     Indication: BREAST CANCER
     Route: 042
     Dates: start: 20050524
  4. TAMOXIFEN [Concomitant]
     Dosage: 20 MG/D
     Route: 065
     Dates: end: 20021101
  5. FEMARA [Concomitant]
     Route: 065
     Dates: start: 20021101
  6. RADIOTHERAPY [Concomitant]
     Indication: METASTASES TO BONE
     Dosage: 5 SESSIONS OF 20 GY
     Route: 065
     Dates: start: 20021201

REACTIONS (4)
  - ASEPTIC NECROSIS BONE [None]
  - BONE DEBRIDEMENT [None]
  - METASTASES TO BONE [None]
  - TOOTH EXTRACTION [None]
